FAERS Safety Report 13129365 (Version 1)
Quarter: 2017Q1

REPORT INFORMATION
  Report Type: Spontaneous
  Country: US (occurrence: US)
  Receive Date: 20170118
  Receipt Date: 20170118
  Transmission Date: 20170428
  Serious: No
  Sender: FDA-Public Use
  Company Number: None

PATIENT
  Age: 49 Year
  Sex: Male
  Weight: 88.5 kg

DRUGS (1)
  1. OXALIPLATIN 100MG/20ML 5MG/ML [Suspect]
     Active Substance: OXALIPLATIN
     Indication: PANCREATIC CARCINOMA
     Dosage: 186 MG EVERY 14 DAYS IV
     Route: 042
     Dates: start: 20160811, end: 20161201

REACTIONS (1)
  - Burning sensation [None]

NARRATIVE: CASE EVENT DATE: 20161201
